FAERS Safety Report 7304000-3 (Version None)
Quarter: 2011Q1

REPORT INFORMATION
  Report Type: 
  Country: None (occurrence: None)
  Receive Date: 20110221
  Receipt Date: 20110215
  Transmission Date: 20110831
  Serious: Yes (Other)
  Sender: FDA-Public Use
  Company Number: US-MERCK-1102USA01804

PATIENT
  Age: 81 Year
  Sex: Male

DRUGS (3)
  1. JANUVIA [Suspect]
     Route: 048
  2. METFORMIN [Suspect]
     Route: 065
  3. GLIPIZIDE [Suspect]
     Route: 065

REACTIONS (1)
  - CARDIAC FAILURE CONGESTIVE [None]
